FAERS Safety Report 25074412 (Version 1)
Quarter: 2025Q1

REPORT INFORMATION
  Report Type: Spontaneous
  Country: ES (occurrence: ES)
  Receive Date: 20250313
  Receipt Date: 20250313
  Transmission Date: 20250408
  Serious: Yes (Other)
  Sender: NOVARTIS
  Company Number: ES-002147023-NVSC2025ES038701

PATIENT
  Age: 62 Year
  Sex: Male

DRUGS (1)
  1. ALPELISIB [Suspect]
     Active Substance: ALPELISIB
     Indication: PIK3CA related overgrowth spectrum
     Route: 065

REACTIONS (4)
  - Osteomyelitis [Unknown]
  - Skin ulcer [Unknown]
  - Drug ineffective [Unknown]
  - Off label use [Unknown]
